FAERS Safety Report 25501662 (Version 2)
Quarter: 2025Q3

REPORT INFORMATION
  Report Type: Report from Study
  Country: UY (occurrence: UY)
  Receive Date: 20250701
  Receipt Date: 20250803
  Transmission Date: 20251021
  Serious: Yes (Other)
  Sender: ABBVIE
  Company Number: UY-ABBVIE-6349800

PATIENT
  Age: 59 Year
  Sex: Female

DRUGS (2)
  1. RINVOQ [Suspect]
     Active Substance: UPADACITINIB
     Indication: Spondylitis
     Dosage: FORM STRENGTH: 15 MG, 30 TABLETS?LAST ADMIN DATE: 2025
     Route: 048
     Dates: start: 20250619
  2. RINVOQ [Suspect]
     Active Substance: UPADACITINIB
     Indication: Spondylitis
     Dosage: FORM STRENGTH: 15 MG, 30 TABLETS
     Route: 048
     Dates: start: 20240912, end: 20250618

REACTIONS (3)
  - Arthrodesis [Not Recovered/Not Resolved]
  - Post procedural infection [Not Recovered/Not Resolved]
  - Post procedural complication [Not Recovered/Not Resolved]

NARRATIVE: CASE EVENT DATE: 20250101
